FAERS Safety Report 21121196 (Version 1)
Quarter: 2022Q3

REPORT INFORMATION
  Report Type: Spontaneous
  Country: US (occurrence: None)
  Receive Date: 20220722
  Receipt Date: 20220722
  Transmission Date: 20221026
  Serious: Yes (Other)
  Sender: FDA-Public Use
  Company Number: None

PATIENT
  Age: 60 Year
  Sex: Female

DRUGS (1)
  1. CARBAMAZEPINE [Suspect]
     Active Substance: CARBAMAZEPINE
     Indication: Status epilepticus
     Dosage: 200MG : 8 TABS DAILY ORAL?
     Route: 048

REACTIONS (2)
  - Seizure [None]
  - Condition aggravated [None]

NARRATIVE: CASE EVENT DATE: 20200113
